FAERS Safety Report 6956765-8 (Version None)
Quarter: 2010Q3

REPORT INFORMATION
  Report Type: 
  Country: None (occurrence: None)
  Receive Date: 20100830
  Receipt Date: 20100820
  Transmission Date: 20110219
  Serious: Yes (Hospitalization, Other)
  Sender: FDA-Public Use
  Company Number: CA-ABBOTT-10P-028-0665616-00

PATIENT
  Sex: Male
  Weight: 126.67 kg

DRUGS (7)
  1. HUMIRA [Suspect]
     Indication: ANKYLOSING SPONDYLITIS
     Route: 058
     Dates: start: 20100223, end: 20100806
  2. SULFASALAZINE [Concomitant]
     Indication: PRODUCT USED FOR UNKNOWN INDICATION
     Route: 048
  3. ARTHROTEC [Concomitant]
     Indication: PRODUCT USED FOR UNKNOWN INDICATION
     Dosage: 75 MG DAILY
     Route: 048
  4. PRILOSEC [Concomitant]
     Indication: GASTRIC DISORDER
     Dosage: 40 MG DAILY
     Route: 048
  5. PERCOCET [Concomitant]
     Indication: PAIN
     Route: 048
  6. VITAMIN D [Concomitant]
     Indication: VITAMIN SUPPLEMENTATION
     Dosage: 1 TABLET DAILY
     Route: 048
  7. CALCIUM [Concomitant]
     Indication: MINERAL SUPPLEMENTATION
     Dosage: 1 TABLET DAILY
     Route: 048

REACTIONS (9)
  - DRUG INEFFECTIVE [None]
  - DYSPNOEA [None]
  - FATIGUE [None]
  - MALAISE [None]
  - MUSCULOSKELETAL CHEST PAIN [None]
  - NAUSEA [None]
  - PLEURISY [None]
  - PLEURITIC PAIN [None]
  - VOMITING [None]
